FAERS Safety Report 15851421 (Version 1)
Quarter: 2019Q1

REPORT INFORMATION
  Report Type: Spontaneous
  Country: US (occurrence: US)
  Receive Date: 20190122
  Receipt Date: 20190122
  Transmission Date: 20190417
  Serious: No
  Sender: FDA-Public Use
  Company Number: US-009507513-1901USA003129

PATIENT
  Age: 16 Year
  Sex: Female
  Weight: 74.83 kg

DRUGS (1)
  1. NEXPLANON [Suspect]
     Active Substance: ETONOGESTREL
     Indication: MENSTRUAL CYCLE MANAGEMENT
     Dosage: IMPLANT, EVERY 3 YEARS
     Route: 059
     Dates: start: 20170419

REACTIONS (7)
  - Contusion [Unknown]
  - Headache [Unknown]
  - Menorrhagia [Unknown]
  - Product use issue [Unknown]
  - Peripheral swelling [Unknown]
  - Abdominal pain [Unknown]
  - Device breakage [Not Recovered/Not Resolved]

NARRATIVE: CASE EVENT DATE: 20181225
